FAERS Safety Report 8638497 (Version 2)
Quarter: 2013Q3

REPORT INFORMATION
  Report Type: Spontaneous
  Country: CA (occurrence: CA)
  Receive Date: 20120627
  Receipt Date: 20130723
  Transmission Date: 20140515
  Serious: Yes (Other)
  Sender: FDA-Public Use
  Company Number: CA-JNJFOC-20120610234

PATIENT
  Age: 41 Year
  Sex: Female
  Weight: 91 kg

DRUGS (27)
  1. REMICADE [Suspect]
     Indication: PSORIATIC ARTHROPATHY
     Dosage: APPROXIMATELY #38 INFUSION
     Route: 042
     Dates: start: 2007
  2. REMICADE [Suspect]
     Indication: PSORIATIC ARTHROPATHY
     Route: 042
     Dates: start: 20090713
  3. REMICADE [Suspect]
     Indication: PSORIATIC ARTHROPATHY
     Route: 042
     Dates: start: 20120616
  4. REMICADE [Suspect]
     Indication: ARTHRITIS
     Dosage: APPROXIMATELY #38 INFUSION
     Route: 042
     Dates: start: 2007
  5. REMICADE [Suspect]
     Indication: ARTHRITIS
     Route: 042
     Dates: start: 20120616
  6. REMICADE [Suspect]
     Indication: ARTHRITIS
     Route: 042
     Dates: start: 20090713
  7. REMICADE [Suspect]
     Indication: CROHN^S DISEASE
     Route: 042
     Dates: start: 20090713
  8. REMICADE [Suspect]
     Indication: CROHN^S DISEASE
     Route: 042
     Dates: start: 20120616
  9. REMICADE [Suspect]
     Indication: CROHN^S DISEASE
     Dosage: APPROXIMATELY #38 INFUSION
     Route: 042
     Dates: start: 2007
  10. METHOTREXATE [Suspect]
     Indication: PRODUCT USED FOR UNKNOWN INDICATION
     Route: 065
  11. BENADRYL [Concomitant]
     Indication: PREMEDICATION
     Route: 042
  12. LIPITOR [Concomitant]
     Route: 065
  13. SALOFALK [Concomitant]
     Route: 065
  14. GABAPENTIN [Concomitant]
     Route: 065
  15. TYLENOL 3 [Concomitant]
     Route: 048
  16. ALL OTHER THERAPEUTICS [Concomitant]
     Route: 065
  17. MULTIVITAMINS [Concomitant]
     Route: 065
  18. FOLIC ACID [Concomitant]
     Route: 065
  19. VALPROIC ACID [Concomitant]
     Route: 065
  20. FLEXINOL [Concomitant]
     Route: 065
  21. TYLENOL [Concomitant]
     Indication: PREMEDICATION
     Route: 048
  22. DEMEROL [Concomitant]
     Indication: PREMEDICATION
     Route: 065
  23. GRAVOL [Concomitant]
     Indication: PREMEDICATION
     Route: 065
  24. PREDNISONE [Concomitant]
     Route: 065
  25. AERIUS [Concomitant]
     Indication: PREMEDICATION
     Route: 048
     Dates: start: 20120614
  26. AERIUS [Concomitant]
     Indication: PREMEDICATION
     Route: 048
     Dates: start: 20120614
  27. SOLUCORTEF [Concomitant]
     Indication: PREMEDICATION
     Route: 042
     Dates: start: 20120614

REACTIONS (6)
  - Herpes virus infection [Recovered/Resolved]
  - Stomatitis [Recovered/Resolved]
  - Cystitis [Unknown]
  - Dyspnoea [Recovered/Resolved]
  - Infusion related reaction [Recovered/Resolved]
  - Pruritus [Recovered/Resolved]
